FAERS Safety Report 7091179-4 (Version None)
Quarter: 2010Q4

REPORT INFORMATION
  Report Type: 
  Country: None (occurrence: None)
  Receive Date: 20101109
  Receipt Date: 20040914
  Transmission Date: 20110411
  Serious: Yes (Other)
  Sender: FDA-Public Use
  Company Number: NL-ROCHE-733719

PATIENT

DRUGS (1)
  1. HERCEPTIN [Suspect]
     Route: 042
     Dates: end: 20040901

REACTIONS (1)
  - EJECTION FRACTION DECREASED [None]
